FAERS Safety Report 12858314 (Version 3)
Quarter: 2016Q4

REPORT INFORMATION
  Report Type: Report from Study
  Country: CO (occurrence: CO)
  Receive Date: 20161018
  Receipt Date: 20161215
  Transmission Date: 20170207
  Serious: Yes (Other)
  Sender: FDA-Public Use
  Company Number: CO-JNJFOC-20161009710

PATIENT
  Age: 52 Year
  Sex: Male
  Weight: 96 kg

DRUGS (11)
  1. SIMPONI [Suspect]
     Active Substance: GOLIMUMAB
     Indication: RHEUMATOID ARTHRITIS
     Route: 058
     Dates: start: 20161004, end: 20161004
  2. LEFLUNOMIDE. [Concomitant]
     Active Substance: LEFLUNOMIDE
     Indication: RHEUMATOID ARTHRITIS
     Route: 048
  3. PREDNISOLONE. [Concomitant]
     Active Substance: PREDNISOLONE
     Indication: RHEUMATOID ARTHRITIS
     Route: 048
  4. ACETYLSALICYLIC ACID [Concomitant]
     Active Substance: ASPIRIN
     Route: 048
  5. ALENDRONATE SODIUM. [Concomitant]
     Active Substance: ALENDRONATE SODIUM
     Route: 048
  6. FOLIC ACID. [Concomitant]
     Active Substance: FOLIC ACID
     Indication: RHEUMATOID ARTHRITIS
     Route: 048
  7. PARACETAMOL/CODEINE [Concomitant]
     Active Substance: ACETAMINOPHEN\CODEINE PHOSPHATE
     Indication: PRODUCT USED FOR UNKNOWN INDICATION
     Dosage: DOSE REPORTED WAS 325+8 MG
     Route: 048
  8. METHOTREXATE. [Concomitant]
     Active Substance: METHOTREXATE
     Indication: RHEUMATOID ARTHRITIS
     Route: 048
     Dates: start: 2013
  9. SIMPONI [Suspect]
     Active Substance: GOLIMUMAB
     Indication: RHEUMATOID ARTHRITIS
     Route: 058
     Dates: start: 20160104, end: 201609
  10. ATORVASTATIN [Concomitant]
     Active Substance: ATORVASTATIN
     Route: 048
  11. CACIT VITAMINE D3 [Concomitant]
     Active Substance: CALCIUM CARBONATE\CHOLECALCIFEROL
     Route: 048

REACTIONS (9)
  - Limb injury [Unknown]
  - Remission not achieved [Unknown]
  - Accident [Unknown]
  - Infection [Recovering/Resolving]
  - Urinary tract infection [Recovering/Resolving]
  - Localised infection [Unknown]
  - Hypogammaglobulinaemia [Recovering/Resolving]
  - Arthritis [Recovering/Resolving]
  - Lung neoplasm [Recovering/Resolving]

NARRATIVE: CASE EVENT DATE: 2016
